FAERS Safety Report 19199057 (Version 1)
Quarter: 2021Q2

REPORT INFORMATION
  Report Type: Report from Study
  Country: US (occurrence: US)
  Receive Date: 20210430
  Receipt Date: 20210430
  Transmission Date: 20210717
  Serious: Yes (Death, Other)
  Sender: FDA-Public Use
  Company Number: US-PFIZER INC-2021478592

PATIENT

DRUGS (1)
  1. HEPARIN SODIUM. [Suspect]
     Active Substance: HEPARIN SODIUM
     Dosage: 1600 IU, DAILY

REACTIONS (2)
  - Pulmonary embolism [Fatal]
  - Heparin-induced thrombocytopenia [Unknown]
